FAERS Safety Report 9455912 (Version 1)
Quarter: 2013Q3

REPORT INFORMATION
  Report Type: Spontaneous
  Country: US (occurrence: US)
  Receive Date: 20130813
  Receipt Date: 20130813
  Transmission Date: 20140515
  Serious: No
  Sender: FDA-Public Use
  Company Number: US-TEVA-425154USA

PATIENT
  Age: 72 Year
  Sex: Female
  Weight: 77.18 kg

DRUGS (3)
  1. AZILECT [Suspect]
     Indication: PARKINSON^S DISEASE
     Dates: start: 20130624, end: 20130804
  2. SINEMET [Concomitant]
  3. LISINOPRIL [Concomitant]

REACTIONS (3)
  - Muscle tightness [Unknown]
  - Dyspnoea [Unknown]
  - Decreased appetite [Unknown]
